FAERS Safety Report 12287589 (Version 2)
Quarter: 2016Q2

REPORT INFORMATION
  Report Type: Report from Study
  Country: HK (occurrence: HK)
  Receive Date: 20160420
  Receipt Date: 20160422
  Transmission Date: 20160815
  Serious: Yes (Hospitalization)
  Sender: FDA-Public Use
  Company Number: HK-PFIZER INC-HK-WYE-G05767210

PATIENT
  Age: 50 Year
  Sex: Male
  Weight: 72.8 kg

DRUGS (3)
  1. BENZYDAMINE HYDROCHLORIDE [Concomitant]
     Active Substance: BENZYDAMINE HYDROCHLORIDE
     Indication: STOMATITIS
     Dosage: 10 ML, 4X/DAY
     Route: 048
     Dates: start: 20100310
  2. TORISEL [Suspect]
     Active Substance: TEMSIROLIMUS
     Indication: HEPATIC CANCER
     Dosage: 30 MG, ONCE WEEKLY
     Route: 042
     Dates: start: 20100310, end: 20100324
  3. NYSTATIN. [Concomitant]
     Active Substance: NYSTATIN
     Indication: STOMATITIS
     Dosage: 1 ML, 4X/DAY
     Route: 048
     Dates: start: 20100310

REACTIONS (1)
  - Syncope [Recovered/Resolved]

NARRATIVE: CASE EVENT DATE: 20100315
